FAERS Safety Report 4849117-8 (Version None)
Quarter: 2005Q4

REPORT INFORMATION
  Report Type: 
  Country: None (occurrence: None)
  Receive Date: 20051209
  Receipt Date: 20051203
  Transmission Date: 20060501
  Serious: Yes (Disabling)
  Sender: FDA-Public Use
  Company Number: GB-GLAXOSMITHKLINE-B0402632A

PATIENT
  Age: 46 Year
  Sex: Male
  Weight: 22 kg

DRUGS (5)
  1. SERETIDE [Suspect]
     Indication: ASTHMA
     Dosage: 500MCG PER DAY
     Route: 055
     Dates: start: 20051017, end: 20051027
  2. QVAR [Concomitant]
     Indication: ASTHMA
     Dosage: 100MCG TWICE PER DAY
     Route: 055
     Dates: start: 20020101
  3. SALMETEROL [Concomitant]
     Indication: ASTHMA
     Dosage: 2U TWICE PER DAY
     Route: 055
     Dates: start: 20040101, end: 20051010
  4. SALBUTAMOL [Concomitant]
     Indication: ASTHMA
     Dosage: 2U AS REQUIRED
     Route: 055
     Dates: start: 19950101
  5. BECOTIDE [Concomitant]

REACTIONS (3)
  - ARTHRALGIA [None]
  - EYE SWELLING [None]
  - OEDEMA PERIPHERAL [None]
